FAERS Safety Report 5007363-7 (Version None)
Quarter: 2006Q2

REPORT INFORMATION
  Report Type: 
  Country: None (occurrence: None)
  Receive Date: 20060519
  Receipt Date: 20060519
  Transmission Date: 20061013
  Serious: Yes (Other)
  Sender: FDA-Public Use
  Company Number: None

PATIENT
  Sex: Male
  Weight: 153.3158 kg

DRUGS (1)
  1. ROSIGLITAZONE [Suspect]
     Dosage: 80MG DAILY PO
     Route: 048
     Dates: start: 20050315, end: 20060309

REACTIONS (2)
  - VISION BLURRED [None]
  - WEIGHT INCREASED [None]
